FAERS Safety Report 20048673 (Version 6)
Quarter: 2023Q1

REPORT INFORMATION
  Report Type: Spontaneous
  Country: US (occurrence: US)
  Receive Date: 20211109
  Receipt Date: 20230113
  Transmission Date: 20230417
  Serious: Yes (Other)
  Sender: FDA-Public Use
  Company Number: US-PFIZER INC-2020275857

PATIENT
  Age: 72 Year
  Sex: Female

DRUGS (1)
  1. EUCRISA [Suspect]
     Active Substance: CRISABOROLE
     Indication: Dermatitis atopic
     Dosage: AS NEEDED (APPLY TWICE A DAY TO AFFECTED AREAS ON FACE, NECK, LEGS, BREASTS AS NEEDED)
     Route: 061

REACTIONS (7)
  - Cardiac disorder [Unknown]
  - Therapeutic product effect incomplete [Unknown]
  - Off label use [Unknown]
  - Eczema [Unknown]
  - Herpes zoster [Unknown]
  - Nervousness [Unknown]
  - Stress [Unknown]
